FAERS Safety Report 5463528-1 (Version None)
Quarter: 2007Q3

REPORT INFORMATION
  Report Type: 
  Country: None (occurrence: None)
  Receive Date: 20070920
  Receipt Date: 20070910
  Transmission Date: 20080115
  Serious: Yes (Other)
  Sender: FDA-Public Use
  Company Number: US-PFIZER INC-2007076111

PATIENT
  Age: 54 Year
  Sex: Female
  Weight: 54.4 kg

DRUGS (19)
  1. CHANTIX [Suspect]
     Indication: SMOKING CESSATION THERAPY
  2. PHRENILIN [Concomitant]
  3. LISINOPRIL [Concomitant]
  4. KLONOPIN [Concomitant]
  5. DICYCLOMINE [Concomitant]
  6. ISOSORBIDE DINITRATE [Concomitant]
  7. NITROGLYCERIN [Concomitant]
  8. ASPIRIN [Concomitant]
  9. SIMVASTATIN [Concomitant]
  10. METOPROLOL SUCCINATE [Concomitant]
  11. HYDROCODONE BITARTRATE + ACETAMINOPHEN [Concomitant]
  12. CYCLOBENZAPRINE HCL [Concomitant]
  13. MECLIZINE [Concomitant]
  14. METHYLPREDNISOLONE [Concomitant]
  15. PROMETHAZINE [Concomitant]
  16. PROAIR HFA [Concomitant]
  17. ROBAXIN [Concomitant]
  18. CYMBALTA [Concomitant]
  19. TROSPIUM CHLORIDE [Concomitant]

REACTIONS (5)
  - ACTIVITIES OF DAILY LIVING IMPAIRED [None]
  - ASTHENIA [None]
  - DYSPEPSIA [None]
  - MALAISE [None]
  - NAUSEA [None]
